FAERS Safety Report 6076203-X (Version None)
Quarter: 2009Q1

REPORT INFORMATION
  Report Type: 
  Country: None (occurrence: None)
  Receive Date: 20090212
  Receipt Date: 20090202
  Transmission Date: 20090719
  Serious: Yes (Other)
  Sender: FDA-Public Use
  Company Number: SE-PFIZER INC-2009161344

PATIENT

DRUGS (1)
  1. DEPO-MEDROL [Suspect]
     Dates: start: 20080919

REACTIONS (2)
  - DISCOMFORT [None]
  - PALPITATIONS [None]
